FAERS Safety Report 4905451-4 (Version None)
Quarter: 2006Q1

REPORT INFORMATION
  Report Type: 
  Country: None (occurrence: None)
  Receive Date: 20060208
  Receipt Date: 20030605
  Transmission Date: 20060701
  Serious: Yes (Hospitalization, Disabling)
  Sender: FDA-Public Use
  Company Number: US-MERCK-0306USA00802

PATIENT
  Age: 55 Year
  Sex: Male
  Weight: 91 kg

DRUGS (4)
  1. VIOXX [Suspect]
     Indication: ARTHRALGIA
     Route: 048
     Dates: start: 19990813, end: 20000324
  2. VIOXX [Suspect]
     Indication: PAIN IN EXTREMITY
     Route: 048
     Dates: start: 19990813, end: 20000324
  3. BUMEX [Concomitant]
     Route: 065
  4. DURICEF [Concomitant]
     Route: 065
     Dates: start: 19990823

REACTIONS (42)
  - ANXIETY [None]
  - ARTERITIS [None]
  - ARTHRITIS [None]
  - BACK PAIN [None]
  - BLOOD CHOLESTEROL INCREASED [None]
  - BREATH SOUNDS ABNORMAL [None]
  - CARPAL TUNNEL SYNDROME [None]
  - CERVICOBRACHIAL SYNDROME [None]
  - CHEST INJURY [None]
  - CHEST PAIN [None]
  - CONTUSION [None]
  - COUGH [None]
  - DEPRESSION [None]
  - DIZZINESS [None]
  - DYSPNOEA [None]
  - EPICONDYLITIS [None]
  - EXOSTOSIS [None]
  - HEADACHE [None]
  - HYPERLIPIDAEMIA [None]
  - HYPERTENSION [None]
  - INJURY [None]
  - INTERVERTEBRAL DISC PROTRUSION [None]
  - LIMB INJURY [None]
  - LOW DENSITY LIPOPROTEIN INCREASED [None]
  - LUNG DISORDER [None]
  - MEDIAN NERVE INJURY [None]
  - NECK INJURY [None]
  - NECK PAIN [None]
  - NERVE ROOT COMPRESSION [None]
  - NEURALGIA [None]
  - OSTEOPOROSIS [None]
  - PAIN IN EXTREMITY [None]
  - PANIC ATTACK [None]
  - PARAESTHESIA [None]
  - PRODUCTIVE COUGH [None]
  - RADICULAR PAIN [None]
  - ROAD TRAFFIC ACCIDENT [None]
  - SHOULDER PAIN [None]
  - SPINAL COLUMN STENOSIS [None]
  - TONSILLITIS [None]
  - VERTEBRAL COLUMN MASS [None]
  - WHEEZING [None]
